FAERS Safety Report 6126181-X (Version None)
Quarter: 2009Q1

REPORT INFORMATION
  Report Type: 
  Country: None (occurrence: None)
  Receive Date: 20090320
  Receipt Date: 20090316
  Transmission Date: 20090719
  Serious: Yes (Other)
  Sender: FDA-Public Use
  Company Number: B0560184A

PATIENT
  Age: 49 Year
  Sex: Male
  Weight: 61 kg

DRUGS (5)
  1. FOSAMPRENAVIR [Suspect]
     Indication: HIV INFECTION
  2. RITONAVIR [Suspect]
     Indication: HIV INFECTION
     Dosage: 100MG PER DAY
     Route: 048
     Dates: start: 20080617, end: 20090123
  3. REYATAZ [Suspect]
     Indication: HIV INFECTION
     Dosage: 300MG PER DAY
     Route: 048
     Dates: start: 20080617, end: 20090123
  4. REYATAZ [Suspect]
     Dates: start: 20090123
  5. KIVEXA [Concomitant]
     Indication: HIV INFECTION
     Route: 048
     Dates: start: 20080617

REACTIONS (1)
  - BLOOD TRIGLYCERIDES INCREASED [None]
